FAERS Safety Report 6164668-4 (Version None)
Quarter: 2009Q2

REPORT INFORMATION
  Report Type: 
  Country: None (occurrence: None)
  Receive Date: 20090421
  Receipt Date: 20090407
  Transmission Date: 20091009
  Serious: Yes (Hospitalization)
  Sender: FDA-Public Use
  Company Number: 2009001069

PATIENT
  Age: 75 Year
  Sex: Male
  Weight: 70.7 kg

DRUGS (10)
  1. ERLOTINIB (ERLOTINIB) (TABLET) (ERLOTINIB) [Suspect]
     Indication: NON-SMALL CELL LUNG CANCER
     Dosage: 150 MG, QD, ORAL
     Route: 048
     Dates: start: 20090226
  2. FAMOTIDINE [Concomitant]
  3. PLETAL [Concomitant]
  4. EURODIN (ESTAZOLAM) [Concomitant]
  5. ASPIRIN [Concomitant]
  6. ADALAT [Concomitant]
  7. LASIX [Concomitant]
  8. LOPERAMIDE HCL [Concomitant]
  9. FLUMETHOLON (FLUOROMETHOLONE) [Concomitant]
  10. ALLEGRA [Concomitant]

REACTIONS (3)
  - CARDIAC FAILURE [None]
  - DRUG ERUPTION [None]
  - RESPIRATION ABNORMAL [None]
